FAERS Safety Report 19662084 (Version 4)
Quarter: 2022Q1

REPORT INFORMATION
  Report Type: Report from Study
  Country: BE (occurrence: BE)
  Receive Date: 20210805
  Receipt Date: 20220329
  Transmission Date: 20220423
  Serious: Yes (Hospitalization, Other)
  Sender: FDA-Public Use
  Company Number: BE-ROCHE-2714231

PATIENT
  Age: 68 Year
  Sex: Female
  Weight: 79.2 kg

DRUGS (49)
  1. CARBOPLATIN [Suspect]
     Active Substance: CARBOPLATIN
     Indication: Small cell lung cancer extensive stage
     Dosage: 600 MILLIGRAM (THERAPY START DATE 17/SEP/2020)
     Route: 065
  2. ETOPOSIDE [Suspect]
     Active Substance: ETOPOSIDE
     Indication: Small cell lung cancer extensive stage
     Dosage: 184 MILLIGRAM, 17/SEP/2020
     Route: 065
  3. ATEZOLIZUMAB [Suspect]
     Active Substance: ATEZOLIZUMAB
     Indication: Small cell lung cancer extensive stage
     Dosage: UNK
  4. ATEZOLIZUMAB [Suspect]
     Active Substance: ATEZOLIZUMAB
     Dosage: 1200 MILLIGRAM, Q3W,17/SEP/2020, 07/OCT/2020, 28/OCT/2020, 18/NOV/2020, 09/DEC/2020, 30/DEC/2020
     Route: 042
  5. ATEZOLIZUMAB [Suspect]
     Active Substance: ATEZOLIZUMAB
     Dosage: 1200 MILLIGRAM, Q3W
     Route: 042
  6. ETOPOSIDE [Concomitant]
     Active Substance: ETOPOSIDE
     Indication: Neoplasm malignant
     Dosage: UNK
  7. ETOPOSIDE [Concomitant]
     Active Substance: ETOPOSIDE
     Dosage: UNK (START DATE: 04-AUG-2021)
     Dates: end: 20210917
  8. LEVOTHYROXINE [Concomitant]
     Active Substance: LEVOTHYROXINE
     Dosage: UNK, QD (START:??-???-2005)
  9. ACETAMINOPHEN [Concomitant]
     Active Substance: ACETAMINOPHEN
     Dosage: UNK (START:03-FEB-2021)
  10. ACETAMINOPHEN [Concomitant]
     Active Substance: ACETAMINOPHEN
     Dosage: UNK, QD (START AND STOP: 01-OCT-2021)
  11. ACETAMINOPHEN [Concomitant]
     Active Substance: ACETAMINOPHEN
     Dosage: UNK (START: 17-OCT-2021 AND 28-OCT-2021))
  12. ASTRAZENECA COVID-19 VACCINE [Concomitant]
     Active Substance: AZD-1222
     Dosage: UNK (START:18-MAR-2021) (STOP:18-MAR-2021)
  13. LORMETAZEPAM [Concomitant]
     Active Substance: LORMETAZEPAM
     Dosage: UNK, QD (START:1992)
  14. ATORVASTATIN [Concomitant]
     Active Substance: ATORVASTATIN
     Dosage: UNK, QD (START DATE: 2000)
  15. WHOLE BLOOD [Concomitant]
     Active Substance: WHOLE BLOOD
     Dosage: UNK, QD (START DATE AND STOP:28-OCT-2020)
  16. FUROSEMIDE [Concomitant]
     Active Substance: FUROSEMIDE
     Dosage: UNK, QD (START:2004 )
  17. FOSFOMYCIN TROMETHAMINE [Concomitant]
     Active Substance: FOSFOMYCIN TROMETHAMINE
     Dosage: UNK (START DATE AND STOP: 30-SEP-2020)
     Route: 065
  18. VARIVENOL [Concomitant]
     Dosage: UNK, QD (START: 2017 )
  19. DEXAMETHASONE [Concomitant]
     Active Substance: DEXAMETHASONE
     Dosage: 10 MILLIGRAM, QD (START AND STOP:26-AUG-2020 )
  20. DEXAMETHASONE [Concomitant]
     Active Substance: DEXAMETHASONE
     Dosage: 10 MILLIGRAM, QD (START AND STOP:17-SEP-2020)
  21. PALONOSETRON [Concomitant]
     Active Substance: PALONOSETRON
     Dosage: 0.5 MILLIGRAM, QD (START AND STOP:26-AUG-2020 )
  22. PALONOSETRON [Concomitant]
     Active Substance: PALONOSETRON
     Dosage: 0.5 MILLIGRAM, QD (START AND STOP:17-SEP-2020)
  23. PALONOSETRON [Concomitant]
     Active Substance: PALONOSETRON
     Dosage: 0.5 MILLIGRAM, QD (START AND STOP: 07-OCT-2020)
  24. PALONOSETRON [Concomitant]
     Active Substance: PALONOSETRON
     Dosage: 0.5 MILLIGRAM, QD (START DATE AND STOP:28-OCT-2020)
  25. BISOPROLOL [Concomitant]
     Active Substance: BISOPROLOL
     Dosage: UNK UNK, QD (START:2004 )
  26. GYNO DAKTARIN [Concomitant]
     Dosage: UNK
  27. NETUPITANT [Concomitant]
     Active Substance: NETUPITANT
     Dosage: 300 MILLIGRAM, QD (START DATE AND STOP:26-AUG-2020 )
  28. NETUPITANT [Concomitant]
     Active Substance: NETUPITANT
     Dosage: 300 MILLIGRAM, QD (START AND STOP:07-OCT-2020)
  29. NETUPITANT [Concomitant]
     Active Substance: NETUPITANT
     Dosage: 300 MILLIGRAM, QD (START AND STOP:28-OCT-2020)
  30. NETUPITANT [Concomitant]
     Active Substance: NETUPITANT
     Dosage: 300 MILLIGRAM, QD (START AND STOP:17-SEP-2020)
  31. INDACATEROL [Concomitant]
     Active Substance: INDACATEROL
     Dosage: UNK (START DATE:29-OCT-2020; STOP:AUG-2021)
  32. INDACATEROL [Concomitant]
     Active Substance: INDACATEROL
     Dosage: UNK, QD (START DATE: ??-OCT-2021)
  33. INFLUENZA VIRUS VACCINE [Concomitant]
     Active Substance: INFLUENZA VIRUS VACCINE
     Dosage: UNK (START DATE:NOV-2020)
  34. CARBOPLATIN [Concomitant]
     Active Substance: CARBOPLATIN
     Indication: Neoplasm malignant
     Dosage: UNK, QD
  35. CARBOPLATIN [Concomitant]
     Active Substance: CARBOPLATIN
     Dosage: UNK (START DATE: 04-AUG-2021)
     Dates: end: 20210915
  36. VOLTAREN [Concomitant]
     Active Substance: DICLOFENAC SODIUM
     Dosage: UNK (START DATE AND STOP:DEC-2020)
  37. MAGNESIUM SULFATE [Concomitant]
     Active Substance: MAGNESIUM SULFATE
     Dosage: UNK (START DATE AND STOP:13-OCT-2021)
  38. MAGNESIUM SULFATE [Concomitant]
     Active Substance: MAGNESIUM SULFATE
     Dosage: UNK (START AND STOP:16-SEP-2021)
  39. MAGNESIUM SULFATE [Concomitant]
     Active Substance: MAGNESIUM SULFATE
     Dosage: UNK(START AND STOP:03-NOV-2021 )
  40. MAGNESIUM SULFATE [Concomitant]
     Active Substance: MAGNESIUM SULFATE
     Dosage: UNK (START AND STOP:26-AUG-2021)
  41. DAFALGAN [Concomitant]
     Active Substance: ACETAMINOPHEN
     Dosage: UNK (START DATE:17-OCT-2021; STOP: 28-OCT-2021)
  42. Daflon [Concomitant]
     Dosage: UNK, BID (START DATE:07-OCT-2021)
  43. GLYCOPYRROLATE\INDACATEROL MALEATE [Concomitant]
     Active Substance: GLYCOPYRROLATE\INDACATEROL MALEATE
     Dosage: UNK, QD (START DATE:AUG-2021; STOP: OCT-2021))
  44. MAGNECAPS [Concomitant]
     Dosage: UNK, QD  (START DATE:14-OCT-2021)
  45. PIPERACILLIN SODIUM\TAZOBACTAM SODIUM [Concomitant]
     Active Substance: PIPERACILLIN SODIUM\TAZOBACTAM SODIUM
     Dosage: UNK, Q4D (START DATE: 15-NOV-2021)
  46. PIPERACILLIN SODIUM\TAZOBACTAM SODIUM [Concomitant]
     Active Substance: PIPERACILLIN SODIUM\TAZOBACTAM SODIUM
     Dosage: UNK, Q4D (START DATE: 01-OCT-2021)
     Dates: end: 20211005
  47. DOXORUBICIN [Concomitant]
     Active Substance: DOXORUBICIN
     Dosage: UNK (START DATE: 13-OCT-2021)
     Dates: end: 20211103
  48. VINCRISTINE [Concomitant]
     Active Substance: VINCRISTINE
     Dosage: UNK (START DATE: 13-OCT-2021)
     Dates: end: 20211103
  49. CYCLOPHOSPHAMIDE [Concomitant]
     Active Substance: CYCLOPHOSPHAMIDE
     Dosage: UNK (START DATE: 13-OCT-2021)
     Dates: end: 20211103

REACTIONS (33)
  - Thrombocytopenia [Recovered/Resolved]
  - Polyneuropathy [Not Recovered/Not Resolved]
  - Anaemia [Not Recovered/Not Resolved]
  - Platelet count decreased [Not Recovered/Not Resolved]
  - Febrile neutropenia [Not Recovered/Not Resolved]
  - Chronic obstructive pulmonary disease [Not Recovered/Not Resolved]
  - Rhinorrhoea [Not Recovered/Not Resolved]
  - Dyspnoea [Not Recovered/Not Resolved]
  - Blood creatine phosphokinase increased [Recovered/Resolved]
  - Weight decreased [Not Recovered/Not Resolved]
  - Arthralgia [Not Recovered/Not Resolved]
  - Back pain [Not Recovered/Not Resolved]
  - Myalgia [Recovered/Resolved]
  - Pollakiuria [Recovered/Resolved]
  - Contusion [Recovered/Resolved]
  - Tremor [Not Recovered/Not Resolved]
  - Cystitis [Recovered/Resolved]
  - Dysgeusia [Recovered/Resolved]
  - Hyperuricaemia [Recovered/Resolved]
  - Mouth ulceration [Recovered/Resolved]
  - Alopecia [Not Recovered/Not Resolved]
  - Rash [Recovered/Resolved]
  - Vulvovaginal mycotic infection [Not Recovered/Not Resolved]
  - Urinary tract infection [Recovered/Resolved]
  - Hypomagnesaemia [Not Recovered/Not Resolved]
  - Hypotension [Not Recovered/Not Resolved]
  - Constipation [Not Recovered/Not Resolved]
  - Decreased appetite [Not Recovered/Not Resolved]
  - Hypoacusis [Not Recovered/Not Resolved]
  - Asthenia [Not Recovered/Not Resolved]
  - Nausea [Recovered/Resolved]
  - Epistaxis [Recovered/Resolved]
  - Purpura [Not Recovered/Not Resolved]

NARRATIVE: CASE EVENT DATE: 20200827
